FAERS Safety Report 5122676-6 (Version None)
Quarter: 2006Q4

REPORT INFORMATION
  Report Type: 
  Country: None (occurrence: None)
  Receive Date: 20061004
  Receipt Date: 20060925
  Transmission Date: 20070319
  Serious: Yes (Hospitalization)
  Sender: FDA-Public Use
  Company Number: FRP06000989

PATIENT
  Age: 74 Year
  Sex: Female

DRUGS (1)
  1. ACTONEL [Suspect]
     Indication: OSTEOPOROSIS
     Dosage: 35 MG, 1/WEEK, ORAL
     Route: 048
     Dates: start: 20040101, end: 20060101

REACTIONS (4)
  - ARTHRALGIA [None]
  - HYPERCALCAEMIA [None]
  - HYPOVITAMINOSIS [None]
  - VITAMIN D DEFICIENCY [None]
